FAERS Safety Report 23471398 (Version 1)
Quarter: 2024Q1

REPORT INFORMATION
  Report Type: Spontaneous
  Country: US (occurrence: US)
  Receive Date: 20240202
  Receipt Date: 20240202
  Transmission Date: 20240410
  Serious: No
  Sender: FDA-Public Use
  Company Number: US-SA-SAC20240125000627

PATIENT
  Age: 58 Year
  Sex: Male
  Weight: 85.7 kg

DRUGS (9)
  1. DUPIXENT [Suspect]
     Active Substance: DUPILUMAB
     Indication: Dermatitis atopic
     Dosage: 300MG,QOW
     Route: 058
  2. JARDIANCE [Concomitant]
     Active Substance: EMPAGLIFLOZIN
  3. BETAMETHASONE [Concomitant]
     Active Substance: BETAMETHASONE\BETAMETHASONE DIPROPIONATE
     Dosage: BETAMETHASONE 0.05
  4. BUPROPION [Concomitant]
     Active Substance: BUPROPION
     Dosage: TRIAMCINOLONE 0.025
  5. GLIPIZIDE [Concomitant]
     Active Substance: GLIPIZIDE
  6. METFORMIN [Concomitant]
     Active Substance: METFORMIN HYDROCHLORIDE
  7. OXCARBAZEPINE [Concomitant]
     Active Substance: OXCARBAZEPINE
  8. ZOLOFT [Concomitant]
     Active Substance: SERTRALINE HYDROCHLORIDE
  9. BUPROPION [Concomitant]
     Active Substance: BUPROPION
     Dosage: BUPROPION ER 100MGBUSPIRONE 10MG

REACTIONS (1)
  - Tooth abscess [Unknown]
